FAERS Safety Report 5445899-5 (Version None)
Quarter: 2007Q3

REPORT INFORMATION
  Report Type: 
  Country: None (occurrence: None)
  Receive Date: 20070907
  Receipt Date: 20070829
  Transmission Date: 20080115
  Serious: Yes (Other)
  Sender: FDA-Public Use
  Company Number: PHEH2007US11818

PATIENT
  Sex: Female

DRUGS (1)
  1. DIOVAN [Suspect]
     Dosage: UNK, UNK

REACTIONS (5)
  - HEADACHE [None]
  - HYPOTENSION [None]
  - LIP SWELLING [None]
  - PHARYNGEAL OEDEMA [None]
  - WEIGHT DECREASED [None]
